FAERS Safety Report 17802268 (Version 3)
Quarter: 2021Q1

REPORT INFORMATION
  Report Type: Spontaneous
  Country: US (occurrence: US)
  Receive Date: 20200519
  Receipt Date: 20210216
  Transmission Date: 20210419
  Serious: Yes (Hospitalization, Other)
  Sender: FDA-Public Use
  Company Number: US-PFIZER INC-2020198298

PATIENT
  Age: 75 Year
  Sex: Female

DRUGS (2)
  1. IBRANCE [Suspect]
     Active Substance: PALBOCICLIB
     Indication: ANDROGENETIC ALOPECIA
     Dosage: 125 MG, CYCLIC(125 MG DAILY FOR 21 DAYS ON, 7 DAYS OFF ON A 28 DAY CYCLE)
  2. IBRANCE [Suspect]
     Active Substance: PALBOCICLIB
     Indication: BREAST CANCER FEMALE

REACTIONS (5)
  - Headache [Recovered/Resolved]
  - Diplopia [Recovered/Resolved]
  - Cerebrovascular accident [Unknown]
  - Oedema peripheral [Recovering/Resolving]
  - Tooth fracture [Unknown]
